FAERS Safety Report 5568130-9 (Version None)
Quarter: 2007Q4

REPORT INFORMATION
  Report Type: 
  Country: None (occurrence: None)
  Receive Date: 20071220
  Receipt Date: 20071210
  Transmission Date: 20080405
  Serious: Yes (Other)
  Sender: FDA-Public Use
  Company Number: US-BAYER-200714095BCC

PATIENT
  Age: 75 Year
  Sex: Female
  Weight: 50 kg

DRUGS (9)
  1. ASPIRIN [Suspect]
     Indication: PAIN
     Route: 048
  2. ASPIRIN [Suspect]
     Indication: ISCHAEMIC HEART DISEASE PROPHYLAXIS
     Dosage: TOTAL DAILY DOSE: 81 MG  UNIT DOSE: 81 MG
     Route: 048
     Dates: start: 20040101
  3. ALEVE [Suspect]
     Indication: PAIN
     Route: 048
     Dates: start: 20040101
  4. LORAZEPAM [Concomitant]
  5. DILAUDID [Concomitant]
  6. NATURE'S MADE CALCIUM [Concomitant]
  7. NATURE'S MADE VITAMIN C [Concomitant]
  8. NATURE'S BOUNTY CALCIUM [Concomitant]
  9. OMEPRAZOLE [Concomitant]

REACTIONS (1)
  - COELIAC DISEASE [None]
